FAERS Safety Report 8544780-2 (Version None)
Quarter: 2012Q3

REPORT INFORMATION
  Report Type: 
  Country: None (occurrence: None)
  Receive Date: 20120727
  Receipt Date: 20120720
  Transmission Date: 20120928
  Serious: Yes (Death, Hospitalization)
  Sender: FDA-Public Use
  Company Number: US-ACTELION-A-NJ2012-68873

PATIENT

DRUGS (2)
  1. EPOPROSTENOL SODIUM [Suspect]
     Indication: PULMONARY ARTERIAL HYPERTENSION
     Dosage: 8.5 NG/KG, PER MIN
     Route: 041
     Dates: start: 20120501
  2. VENTAVIS [Suspect]
     Indication: PULMONARY ARTERIAL HYPERTENSION
     Route: 055

REACTIONS (7)
  - STAPHYLOCOCCAL INFECTION [None]
  - PULMONARY HYPERTENSION [None]
  - URINARY TRACT INFECTION [None]
  - CARDIAC DISORDER [None]
  - SYSTEMIC LUPUS ERYTHEMATOSUS [None]
  - HAEMOGLOBIN DECREASED [None]
  - DEATH [None]
